FAERS Safety Report 15149165 (Version 1)
Quarter: 2018Q3

REPORT INFORMATION
  Report Type: Spontaneous
  Country: PR (occurrence: US)
  Receive Date: 20180716
  Receipt Date: 20180716
  Transmission Date: 20181010
  Serious: No
  Sender: FDA-Public Use
  Company Number: PR-VIIV HEALTHCARE LIMITED-US2018GSK122643

PATIENT
  Age: 37 Year
  Sex: Female
  Weight: 69.84 kg

DRUGS (2)
  1. TRIUMEQ [Suspect]
     Active Substance: ABACAVIR SULFATE\DOLUTEGRAVIR SODIUM\LAMIVUDINE
     Indication: HIV INFECTION
     Dosage: 1 DF, QD
     Route: 048
     Dates: start: 20160227, end: 20180603
  2. FOLIC ACID. [Concomitant]
     Active Substance: FOLIC ACID

REACTIONS (3)
  - Cervix operation [Unknown]
  - Herpes zoster [Recovered/Resolved]
  - Cervix disorder [Unknown]

NARRATIVE: CASE EVENT DATE: 20171027
